FAERS Safety Report 5919070-4 (Version None)
Quarter: 2008Q4

REPORT INFORMATION
  Report Type: 
  Country: None (occurrence: None)
  Receive Date: 20081014
  Receipt Date: 20081014
  Transmission Date: 20090506
  Serious: Yes (Death, Life-Threatening, Hospitalization)
  Sender: FDA-Public Use
  Company Number: None

PATIENT
  Sex: Female
  Weight: 100 kg

DRUGS (15)
  1. ARIXTRA [Suspect]
     Indication: THROMBOSIS PROPHYLAXIS
     Dosage: 2.5 MG DAILY SQ
     Route: 058
     Dates: start: 20080908, end: 20080923
  2. XANAX [Concomitant]
  3. TENORMIN [Concomitant]
  4. AMBIEN [Concomitant]
  5. SYNTHROID [Concomitant]
  6. MAALOX EX STENGTH [Concomitant]
  7. DASYREL [Concomitant]
  8. LOVENOX [Concomitant]
  9. PERCOCET [Concomitant]
  10. NOVOLOG [Concomitant]
  11. THERAGRAN M [Concomitant]
  12. ZANTAC [Concomitant]
  13. LORTAB [Concomitant]
  14. COLACE [Concomitant]
  15. LORTAB [Concomitant]

REACTIONS (5)
  - CARDIO-RESPIRATORY ARREST [None]
  - INJECTION SITE HAEMORRHAGE [None]
  - LUNG CONSOLIDATION [None]
  - OPERATIVE HAEMORRHAGE [None]
  - PULMONARY EMBOLISM [None]
